FAERS Safety Report 25488596 (Version 1)
Quarter: 2025Q2

REPORT INFORMATION
  Report Type: Spontaneous
  Country: US (occurrence: US)
  Receive Date: 20250627
  Receipt Date: 20250627
  Transmission Date: 20250716
  Serious: No
  Sender: CB FLEET
  Company Number: US-PRESTIGE-202409-US-003164

PATIENT
  Sex: Female

DRUGS (1)
  1. NIX COMPLETE MAXIMUM STRENGTH LICE ELIMINATION [Suspect]
     Active Substance: PERMETHRIN
     Indication: Product used for unknown indication
     Route: 061

REACTIONS (1)
  - Hypersensitivity [Unknown]
